FAERS Safety Report 6599504-5 (Version None)
Quarter: 2010Q1

REPORT INFORMATION
  Report Type: 
  Country: None (occurrence: None)
  Receive Date: 20100224
  Receipt Date: 20100216
  Transmission Date: 20100710
  Serious: Yes (Other)
  Sender: FDA-Public Use
  Company Number: US-BAYER-201011846BCC

PATIENT
  Sex: Male

DRUGS (1)
  1. CAMPHO-PHENIQUE [Suspect]
     Indication: ACNE
     Route: 003

REACTIONS (3)
  - DYSPEPSIA [None]
  - ERECTILE DYSFUNCTION [None]
  - GENITAL BURNING SENSATION [None]
